FAERS Safety Report 18057057 (Version 1)
Quarter: 2020Q3

REPORT INFORMATION
  Report Type: Spontaneous
  Country: CA (occurrence: CA)
  Receive Date: 20200722
  Receipt Date: 20200722
  Transmission Date: 20201103
  Serious: Yes (Hospitalization)
  Sender: FDA-Public Use
  Company Number: CA-TEVA-2020-CA-1802408

PATIENT
  Age: 25 Year
  Sex: Female

DRUGS (3)
  1. LEUCOVORIN CALCIUM INJECTION [Suspect]
     Active Substance: LEUCOVORIN CALCIUM
     Indication: COLORECTAL CANCER STAGE III
     Route: 042
  2. OXALIPLATIN INJECTION [Suspect]
     Active Substance: OXALIPLATIN
     Indication: COLORECTAL CANCER STAGE III
     Route: 042
  3. FLUOROURACIL INJECTION PHARMACY BULK VIAL [Suspect]
     Active Substance: FLUOROURACIL
     Indication: COLORECTAL CANCER STAGE III
     Route: 042

REACTIONS (1)
  - Colitis [Recovered/Resolved]
